FAERS Safety Report 5633198-8 (Version None)
Quarter: 2008Q1

REPORT INFORMATION
  Report Type: 
  Country: None (occurrence: None)
  Receive Date: 20080215
  Receipt Date: 20080201
  Transmission Date: 20080703
  Serious: Yes (Other)
  Sender: FDA-Public Use
  Company Number: 2008PL000013

PATIENT
  Age: 61 Year
  Sex: Male

DRUGS (2)
  1. AZATHIOPRINE [Suspect]
     Indication: CROHN'S DISEASE
     Dosage: PO
     Route: 048
     Dates: start: 20020101
  2. BUDESONIDE [Concomitant]

REACTIONS (2)
  - INTESTINAL OBSTRUCTION [None]
  - SMALL INTESTINE CARCINOMA [None]
